FAERS Safety Report 17275555 (Version 1)
Quarter: 2020Q1

REPORT INFORMATION
  Report Type: Other
  Country: TW (occurrence: TW)
  Receive Date: 20200116
  Receipt Date: 20200116
  Transmission Date: 20200409
  Serious: Yes (Hospitalization, Other)
  Sender: FDA-Public Use
  Company Number: TW-DEXPHARM-20200039

PATIENT
  Age: 50 Year
  Sex: Male

DRUGS (4)
  1. DEXAMETHASONE. [Suspect]
     Active Substance: DEXAMETHASONE
     Indication: PNEUMONITIS
     Dosage: DAILY DOSE: 12 MG MILLGRAM(S) EVERY DAYS
     Dates: start: 20180602, end: 20180619
  2. HYDROCORTISONE. [Suspect]
     Active Substance: HYDROCORTISONE
     Indication: PNEUMONITIS
     Dosage: DAILY DOSE: 300 MG MILLGRAM(S) EVERY DAYS
     Dates: start: 20180528, end: 20180601
  3. DEXAMETHASONE. [Suspect]
     Active Substance: DEXAMETHASONE
     Indication: PNEUMONITIS
     Dosage: DAILY DOSE: 12 MG MILLGRAM(S) EVERY DAYS
     Dates: start: 20180624, end: 20180702
  4. METHYLPREDNISOLONE. [Suspect]
     Active Substance: METHYLPREDNISOLONE
     Indication: PNEUMONITIS
     Dosage: DAILY DOSE: 80 MG MILLGRAM(S) EVERY DAYS
     Dates: start: 20180619, end: 20180623

REACTIONS (1)
  - Pneumatosis intestinalis [Recovered/Resolved]

NARRATIVE: CASE EVENT DATE: 201807
